FAERS Safety Report 11364582 (Version 1)
Quarter: 2015Q3

REPORT INFORMATION
  Report Type: Spontaneous
  Country: US (occurrence: None)
  Receive Date: 20150810
  Receipt Date: 20150810
  Transmission Date: 20151125
  Serious: Yes (Hospitalization)
  Sender: FDA-Public Use
  Company Number: None

PATIENT
  Age: 54 Year
  Sex: Female
  Weight: 58.97 kg

DRUGS (8)
  1. PROGESTERONE. [Concomitant]
     Active Substance: PROGESTERONE
  2. ELESTRIN [Concomitant]
     Active Substance: ESTRADIOL
  3. USTELL [Concomitant]
     Active Substance: HYOSCYAMINE SULFATE\METHENAMINE\METHYLENE BLUE\PHENYL SALICYLATE\SODIUM PHOSPHATE, MONOBASIC, MONOHYDRATE
  4. L-THYROXINE (SYNTHROID) [Concomitant]
  5. ELMIRON [Concomitant]
     Active Substance: PENTOSAN POLYSULFATE SODIUM
  6. VITAMIN D3 [Concomitant]
     Active Substance: CHOLECALCIFEROL
  7. AMITRIPTYLINE\BACLOFEN\BUPIVACAINE\DICLOFENAC\GABAPENTIN\KETAMINE [Suspect]
     Active Substance: AMITRIPTYLINE\BACLOFEN\BUPIVACAINE\DICLOFENAC\GABAPENTIN\KETAMINE
     Indication: CYSTITIS INTERSTITIAL
     Dosage: 1 SUPPOSITORY AS NEEDED
     Route: 067
     Dates: start: 20150806, end: 20150806
  8. ATORVASTATIN [Concomitant]
     Active Substance: ATORVASTATIN

REACTIONS (5)
  - Palpitations [None]
  - Disorientation [None]
  - Dry mouth [None]
  - Feeling abnormal [None]
  - Blood pressure increased [None]

NARRATIVE: CASE EVENT DATE: 20150806
